FAERS Safety Report 7342681-9 (Version None)
Quarter: 2011Q1

REPORT INFORMATION
  Report Type: 
  Country: None (occurrence: None)
  Receive Date: 20110310
  Receipt Date: 20110303
  Transmission Date: 20110831
  Serious: Yes (Other)
  Sender: FDA-Public Use
  Company Number: CO-PFIZER INC-2011047828

PATIENT
  Sex: Female

DRUGS (4)
  1. OMEPRAZOLE [Concomitant]
     Indication: GASTRITIS
     Dosage: 20 MG, 1X/DAY
  2. ENALAPRIL [Concomitant]
     Indication: HYPERTENSION
     Dosage: 20 MG, 1X/DAY
  3. XALATAN [Suspect]
     Indication: GLAUCOMA
     Dosage: 1 DROP PER EYE DAILY
     Route: 047
     Dates: start: 20030101
  4. ASPIRIN [Concomitant]

REACTIONS (1)
  - SPINAL DEFORMITY [None]
